FAERS Safety Report 24716250 (Version 1)
Quarter: 2024Q4

REPORT INFORMATION
  Report Type: Spontaneous
  Country: CN (occurrence: CN)
  Receive Date: 20241210
  Receipt Date: 20241210
  Transmission Date: 20250115
  Serious: Yes (Other)
  Sender: ABBVIE
  Company Number: CN-ABBVIE-6038168

PATIENT
  Age: 55 Year
  Sex: Male
  Weight: 75 kg

DRUGS (1)
  1. PREDNISOLONE ACETATE [Suspect]
     Active Substance: PREDNISOLONE ACETATE
     Indication: Antiinflammatory therapy
     Dosage: 4 DROP
     Route: 047
     Dates: start: 20241201, end: 20241205

REACTIONS (3)
  - Intraocular pressure increased [Recovering/Resolving]
  - Eye swelling [Unknown]
  - Ocular discomfort [Unknown]

NARRATIVE: CASE EVENT DATE: 20241205
